FAERS Safety Report 13672805 (Version 2)
Quarter: 2017Q4

REPORT INFORMATION
  Report Type: Spontaneous
  Country: US (occurrence: US)
  Receive Date: 20170621
  Receipt Date: 20171020
  Transmission Date: 20180320
  Serious: Yes (Death, Hospitalization, Other)
  Sender: FDA-Public Use
  Company Number: US-PFIZER INC-2017265371

PATIENT
  Age: 66 Year
  Sex: Male

DRUGS (1)
  1. CHANTIX [Suspect]
     Active Substance: VARENICLINE TARTRATE
     Indication: SMOKING CESSATION THERAPY
     Dosage: UNK

REACTIONS (3)
  - Cardiac failure [Unknown]
  - Death [Fatal]
  - Malaise [Unknown]
